FAERS Safety Report 23331722 (Version 2)
Quarter: 2023Q4

REPORT INFORMATION
  Report Type: Spontaneous
  Country: FR (occurrence: FR)
  Receive Date: 20231222
  Receipt Date: 20231228
  Transmission Date: 20240110
  Serious: Yes (Other)
  Sender: FDA-Public Use
  Company Number: None

PATIENT
  Age: 30 Year
  Sex: Male

DRUGS (2)
  1. ABILIFY [Interacting]
     Active Substance: ARIPIPRAZOLE
     Indication: Bipolar disorder
     Dosage: 15 MG, QD (1 DOSE)
     Route: 048
     Dates: start: 20231127, end: 20231127
  2. KETAMINE [Interacting]
     Active Substance: KETAMINE
     Indication: Neuralgia
     Dosage: UNK
     Route: 042
     Dates: start: 20231106, end: 20231113

REACTIONS (3)
  - Disease recurrence [Not Recovered/Not Resolved]
  - Neuralgia [Not Recovered/Not Resolved]
  - Drug interaction [Not Recovered/Not Resolved]

NARRATIVE: CASE EVENT DATE: 20231127
